FAERS Safety Report 8818925 (Version 1)
Quarter: 2012Q4

REPORT INFORMATION
  Report Type: Spontaneous
  Country: JO (occurrence: None)
  Receive Date: 20121002
  Receipt Date: 20121002
  Transmission Date: 20130627
  Serious: Yes (Death, Hospitalization)
  Sender: FDA-Public Use
  Company Number: 2012POI057300052

PATIENT
  Age: 40 Year
  Sex: Female

DRUGS (13)
  1. VENLAFAXINE [Suspect]
     Indication: DEPRESSION
  2. VENLAFAXINE [Suspect]
     Indication: ANXIETY
  3. LAMOTRIGINE [Suspect]
     Indication: DEPRESSION
  4. LAMOTRIGINE [Suspect]
     Indication: ANXIETY
  5. MIRTAZAPINE [Suspect]
     Indication: DEPRESSION
  6. MIRTAZAPINE [Suspect]
     Indication: ANXIETY
  7. QUETIAPINE [Suspect]
     Indication: DEPRESSION
  8. QUETIAPINE [Suspect]
     Indication: ANXIETY
  9. UNSPECIFIED OPTHAMOLIC ANTIBIOTIC [Concomitant]
  10. AMOXICILLIN-CLAVULANATE [Concomitant]
  11. FLUCONAZOLE (FLUCONAZOLE) [Concomitant]
  12. ACETAMINOPHEN (PARACETAMOL) [Concomitant]
  13. FERROUS SULFATE (FERROUS SULFATE) [Concomitant]

REACTIONS (19)
  - Cellulitis orbital [None]
  - Oral candidiasis [None]
  - Chills [None]
  - Chills [None]
  - Productive cough [None]
  - Febrile neutropenia [None]
  - Convulsion [None]
  - Septic shock [None]
  - Cardiac arrest [None]
  - Unresponsive to stimuli [None]
  - White blood cell count decreased [None]
  - Agranulocytosis [None]
  - Renal failure acute [None]
  - Haemodialysis [None]
  - Liver function test abnormal [None]
  - Platelet count decreased [None]
  - Multi-organ disorder [None]
  - Blood culture positive [None]
  - Aspiration tracheal abnormal [None]
